FAERS Safety Report 21663756 (Version 8)
Quarter: 2023Q1

REPORT INFORMATION
  Report Type: Spontaneous
  Country: PR (occurrence: PR)
  Receive Date: 20221130
  Receipt Date: 20230201
  Transmission Date: 20230418
  Serious: No
  Sender: FDA-Public Use
  Company Number: PR-PFIZER INC-202201325284

PATIENT
  Age: 14 Year
  Sex: Male
  Weight: 49.9 kg

DRUGS (4)
  1. GENOTROPIN [Suspect]
     Active Substance: SOMATROPIN
     Indication: Growth hormone deficiency
     Dosage: INITIALLY STARTED ON 2.2
     Dates: start: 20220721, end: 2022
  2. GENOTROPIN [Suspect]
     Active Substance: SOMATROPIN
     Dosage: 2.4 MG
     Dates: start: 202207
  3. GENOTROPIN [Suspect]
     Active Substance: SOMATROPIN
     Dosage: 2.4 INJECTION DONE NIGHTLY 6 DAYS A WEEK.
     Dates: start: 202210, end: 202211
  4. GENOTROPIN [Suspect]
     Active Substance: SOMATROPIN
     Dosage: 2.4 DOSE
     Dates: start: 20221003

REACTIONS (10)
  - Nerve compression [Not Recovered/Not Resolved]
  - Injection site bruising [Unknown]
  - Attention deficit hyperactivity disorder [Unknown]
  - Drug dose omission by device [Unknown]
  - Product dose omission issue [Unknown]
  - Poor quality device used [Unknown]
  - Wrong technique in device usage process [Unknown]
  - Device leakage [Unknown]
  - Device defective [Unknown]
  - Device breakage [Unknown]

NARRATIVE: CASE EVENT DATE: 20220101
